FAERS Safety Report 10314372 (Version 1)
Quarter: 2014Q3

REPORT INFORMATION
  Report Type: Spontaneous
  Country: FI (occurrence: None)
  Receive Date: 20140717
  Receipt Date: 20140717
  Transmission Date: 20150326
  Serious: Yes (Death)
  Sender: FDA-Public Use
  Company Number: POI0573201400058

PATIENT
  Age: 85 Year
  Sex: Female

DRUGS (5)
  1. DESMETHYLDIAZEPAM [Suspect]
     Active Substance: DIAZEPAM
     Dates: end: 200611
  2. TEMAZEPAM. [Suspect]
     Active Substance: TEMAZEPAM
     Dates: end: 200611
  3. CITALOPRAM [Suspect]
     Active Substance: CITALOPRAM HYDROBROMIDE
     Dates: end: 200611
  4. VENLAFAXINE [Suspect]
     Active Substance: VENLAFAXINE HYDROCHLORIDE
     Dates: end: 200611
  5. OXAZEPAM. [Suspect]
     Active Substance: OXAZEPAM
     Dates: end: 200611

REACTIONS (8)
  - Bedridden [None]
  - Pain [None]
  - Poisoning [None]
  - Coma [None]
  - Victim of crime [None]
  - Physical assault [None]
  - Vomiting [None]
  - Victim of homicide [None]

NARRATIVE: CASE EVENT DATE: 200611
